FAERS Safety Report 4829937-6 (Version None)
Quarter: 2005Q4

REPORT INFORMATION
  Report Type: 
  Country: None (occurrence: None)
  Receive Date: 20051115
  Receipt Date: 20051020
  Transmission Date: 20060501
  Serious: No
  Sender: FDA-Public Use
  Company Number: GBS041216218

PATIENT
  Age: 12 Year
  Sex: Male
  Weight: 37 kg

DRUGS (2)
  1. STRATTERA [Suspect]
     Indication: ATTENTION DEFICIT/HYPERACTIVITY DISORDER
     Dosage: 40 MG
     Dates: start: 20041001, end: 20050310
  2. CONCERTA [Concomitant]

REACTIONS (10)
  - BLOOD ALKALINE PHOSPHATASE DECREASED [None]
  - CONDITION AGGRAVATED [None]
  - JAUNDICE [None]
  - MOOD ALTERED [None]
  - MOTOR DYSFUNCTION [None]
  - NAUSEA [None]
  - SPEECH DISORDER [None]
  - TIC [None]
  - TREATMENT NONCOMPLIANCE [None]
  - VOMITING [None]
